FAERS Safety Report 20034690 (Version 1)
Quarter: 2021Q4

REPORT INFORMATION
  Report Type: Spontaneous
  Country: DE (occurrence: DE)
  Receive Date: 20211104
  Receipt Date: 20211104
  Transmission Date: 20220303
  Serious: Yes (Hospitalization, Other)
  Sender: FDA-Public Use
  Company Number: DE-ADRED-06914-01

PATIENT
  Age: 74 Year
  Sex: Female

DRUGS (7)
  1. LETROZOLE [Suspect]
     Active Substance: LETROZOLE
     Indication: Product used for unknown indication
     Dosage: 2.5 MG, 1-0-0-0, TABLETTEN
     Route: 048
  2. TORSEMIDE [Concomitant]
     Active Substance: TORSEMIDE
     Dosage: 10 MG, 1-1-0-0, TABLETTEN
     Route: 048
  3. ACTONEL PLUS CALCIUM D [Concomitant]
     Dosage: 1000 | 0.022 | 32.5 MG, ACCORDING TO SCHEME, COMBINATION PACK
     Route: 048
  4. ATORVASTATIN [Concomitant]
     Active Substance: ATORVASTATIN
     Dosage: 40 MG, 0-0-1-0, TABLETTEN
     Route: 048
  5. BISOPROLOL [Concomitant]
     Active Substance: BISOPROLOL
     Dosage: 2.5 MG, 1-0-1-0, TABLETTEN
     Route: 048
  6. PANTOPRAZOL                        /01263201/ [Concomitant]
     Dosage: 40 MG, 1-0-0-0, SUSTAINED-RELEASE TABLETS
     Route: 048
  7. CANDESARTAN CILEXETIL AND HYDROCHLOROTHIAZIDE [Concomitant]
     Active Substance: CANDESARTAN CILEXETIL\HYDROCHLOROTHIAZIDE
     Dosage: 16 | 12.5 MG, 1-0-0-0, TABLETS
     Route: 048

REACTIONS (9)
  - Hepatomegaly [Unknown]
  - Transaminases increased [Unknown]
  - Dyspnoea [Unknown]
  - General physical health deterioration [Unknown]
  - Waist circumference increased [Unknown]
  - Fatigue [Unknown]
  - Oedema peripheral [Unknown]
  - Product used for unknown indication [Unknown]
  - Medication error [Unknown]
